FAERS Safety Report 13279084 (Version 3)
Quarter: 2017Q1

REPORT INFORMATION
  Report Type: Report from Study
  Country: IN (occurrence: IN)
  Receive Date: 20170228
  Receipt Date: 20170329
  Transmission Date: 20170428
  Serious: Yes (Other)
  Sender: FDA-Public Use
  Company Number: IN-AMGEN-INDNI2017030735

PATIENT
  Age: 9 Year
  Sex: Male
  Weight: 34 kg

DRUGS (2)
  1. FOLITRAX [Concomitant]
     Indication: ARTHRITIS
     Dosage: 17.5 MG, WEEKLY
     Route: 058
     Dates: start: 20140901
  2. ETANERCEPT [Suspect]
     Active Substance: ETANERCEPT
     Indication: ARTHROPATHY
     Dosage: 25 MG, QWK
     Route: 058
     Dates: start: 20140920, end: 20161115

REACTIONS (5)
  - Uveitis [Recovering/Resolving]
  - Typhoid fever [Recovered/Resolved]
  - Malaria [Recovered/Resolved]
  - Varicella [Recovered/Resolved]
  - Ocular hyperaemia [Recovering/Resolving]

NARRATIVE: CASE EVENT DATE: 201412
